FAERS Safety Report 24578305 (Version 1)
Quarter: 2024Q4

REPORT INFORMATION
  Report Type: Spontaneous
  Country: GB (occurrence: GB)
  Receive Date: 20241105
  Receipt Date: 20241105
  Transmission Date: 20250115
  Serious: Yes (Hospitalization)
  Sender: AMGEN
  Company Number: GB-Vifor (International) Inc.-VIT-2024-09869

PATIENT
  Age: 72 Year
  Sex: Male

DRUGS (2)
  1. TAVNEOS [Suspect]
     Active Substance: AVACOPAN
     Indication: Anti-neutrophil cytoplasmic antibody positive vasculitis
     Dosage: UNK
     Route: 065
  2. HUMAN PLASMA [Concomitant]
     Active Substance: HUMAN PLASMA
     Indication: Anti-neutrophil cytoplasmic antibody positive vasculitis
     Dosage: AS CLINICAL INDICATED.SUBSEQUENT ADMINISTRATION OF DOSAGE: 26.SEP.2024, 30-SEP-2024,09-OCT-2024, 12-
     Route: 065
     Dates: start: 20240924, end: 20240924

REACTIONS (5)
  - Hospitalisation [Unknown]
  - Oedema peripheral [Recovered/Resolved]
  - Dysgeusia [Unknown]
  - Parosmia [Unknown]
  - Rash [Unknown]

NARRATIVE: CASE EVENT DATE: 20240829
